FAERS Safety Report 6501392-X (Version None)
Quarter: 2009Q4

REPORT INFORMATION
  Report Type: 
  Country: None (occurrence: None)
  Receive Date: 20091216
  Receipt Date: 20091204
  Transmission Date: 20100525
  Serious: Yes (Other)
  Sender: FDA-Public Use
  Company Number: US-BAYER-200936136NA

PATIENT
  Age: 24 Year
  Sex: Female
  Weight: 73 kg

DRUGS (1)
  1. MIRENA [Suspect]
     Indication: CONTRACEPTION
     Route: 015
     Dates: start: 20051001

REACTIONS (8)
  - AMENORRHOEA [None]
  - OVARIAN CYST [None]
  - PREGNANCY TEST NEGATIVE [None]
  - PREGNANCY TEST POSITIVE [None]
  - PROCEDURAL PAIN [None]
  - UTERINE CANCER [None]
  - UTERINE CERVICAL PAIN [None]
  - UTERINE SPASM [None]
